FAERS Safety Report 7434697-9 (Version None)
Quarter: 2011Q2

REPORT INFORMATION
  Report Type: 
  Country: None (occurrence: None)
  Receive Date: 20110425
  Receipt Date: 20110412
  Transmission Date: 20111010
  Serious: Yes (Death, Hospitalization)
  Sender: FDA-Public Use
  Company Number: JP-BAYER-201013566BYL

PATIENT
  Age: 73 Year
  Sex: Female
  Weight: 52 kg

DRUGS (14)
  1. ALINAMIN F [Concomitant]
     Dosage: SINCE BEFORE ADMINISTRATION
     Route: 048
  2. LIVACT [Concomitant]
     Dosage: SINCE BEFORE ADMINISTRATION
     Route: 048
  3. ALDACTONE [Concomitant]
     Dosage: SINCE BEFORE ADMINISTRATION
     Route: 048
  4. LENDORMIN [Concomitant]
     Dosage: SINCE BEFORE ADMINISTRATION
     Route: 048
  5. CALBLOCK [Concomitant]
     Dosage: SINCE BEFORE ADMINISTRATION
     Route: 048
  6. LOXONIN [Concomitant]
     Dosage: SINCE BEFORE ADMINISTRATION
     Route: 048
  7. FALKAMIN [Concomitant]
     Dosage: DAILY DOSE 8.3 G
     Route: 048
  8. SELBEX [Concomitant]
     Indication: GASTRITIS PROPHYLAXIS
     Dosage: SINCE BEFORE ADMINISTRATION
     Route: 048
  9. NEXAVAR [Suspect]
     Dosage: 800 MG (DAILY DOSE), , ORAL
     Route: 048
     Dates: start: 20090629, end: 20090707
  10. NEXAVAR [Suspect]
     Indication: HEPATIC NEOPLASM MALIGNANT
     Route: 048
     Dates: start: 20090622, end: 20090627
  11. URSO 250 [Concomitant]
     Dosage: SINCE BEFORE ADMINISTRATION
     Route: 048
  12. METHYCOBAL [Concomitant]
     Dosage: SINCE BEFORE ADMINISTRATION
     Route: 048
  13. NEUROTROPIN [Concomitant]
     Dosage: SINCE BEFORE ADMINISTRATION
     Route: 048
  14. LASIX [Concomitant]
     Dosage: SINCE BEFORE ADMINISTRATION
     Route: 048

REACTIONS (4)
  - LIVER DISORDER [None]
  - HEPATIC NEOPLASM MALIGNANT [None]
  - NAUSEA [None]
  - RASH [None]
